FAERS Safety Report 8432678-X (Version None)
Quarter: 2012Q2

REPORT INFORMATION
  Report Type: 
  Country: None (occurrence: None)
  Receive Date: 20120606
  Receipt Date: 20120601
  Transmission Date: 20120825
  Serious: Yes (Other)
  Sender: FDA-Public Use
  Company Number: GER/UKI/12/0024569

PATIENT
  Sex: Female

DRUGS (3)
  1. DIAZEPAM [Concomitant]
  2. FLUOXETINE [Suspect]
     Indication: PRODUCT USED FOR UNKNOWN INDICATION
     Dosage: ORAL
     Route: 048
  3. METHADONE HCL [Concomitant]

REACTIONS (2)
  - PREMATURE DELIVERY [None]
  - MATERNAL EXPOSURE DURING PREGNANCY [None]
